FAERS Safety Report 6373200-1 (Version None)
Quarter: 2009Q3

REPORT INFORMATION
  Report Type: 
  Country: None (occurrence: None)
  Receive Date: 20090924
  Receipt Date: 20090127
  Transmission Date: 20100115
  Serious: Yes (Other)
  Sender: FDA-Public Use
  Company Number: US-ASTRAZENECA-2009UW02463

PATIENT
  Age: 18 Year
  Sex: Female

DRUGS (4)
  1. SEROQUEL [Suspect]
     Route: 048
  2. ABILIFY [Concomitant]
  3. STRATTERA [Concomitant]
  4. TENEX [Concomitant]

REACTIONS (2)
  - CHEST DISCOMFORT [None]
  - ELECTROCARDIOGRAM QT PROLONGED [None]
